FAERS Safety Report 10591337 (Version 2)
Quarter: 2014Q4

REPORT INFORMATION
  Report Type: Spontaneous
  Country: US (occurrence: US)
  Receive Date: 20141118
  Receipt Date: 20141118
  Transmission Date: 20150529
  Serious: Yes (Hospitalization)
  Sender: FDA-Public Use
  Company Number: US-MALLINCKRODT-T201403904

PATIENT
  Sex: Male
  Weight: 98 kg

DRUGS (17)
  1. FENTANYL TRANSDERMAL SYSTEM [Suspect]
     Active Substance: FENTANYL
     Dosage: 100 UG/HR, Q 72 HRS
     Route: 062
     Dates: end: 2012
  2. FENTANYL TRANSDERMAL SYSTEM [Suspect]
     Active Substance: FENTANYL
     Dosage: UNK UG/HR, UNK
     Route: 062
     Dates: start: 20140801
  3. FENTANYL TRANSDERMAL SYSTEM [Suspect]
     Active Substance: FENTANYL
     Indication: PAIN
     Dosage: 50 UG/HR, Q 48 HRS
     Route: 062
     Dates: start: 20140910
  4. CYMBALTA [Concomitant]
     Active Substance: DULOXETINE HYDROCHLORIDE
     Dosage: 60 MG, 2 Q AM, (120 MG DAILY DOSE)
     Route: 048
     Dates: start: 2010, end: 201408
  5. LEVOTHYROXINE [Concomitant]
     Active Substance: LEVOTHYROXINE
     Indication: THYROID DISORDER
     Dosage: 100 MCG, QAM
     Route: 048
     Dates: start: 2011
  6. FENTANYL TRANSDERMAL SYSTEM [Suspect]
     Active Substance: FENTANYL
     Dosage: 100 UG/HR, Q 48 HRS
     Route: 062
     Dates: start: 2012, end: 20140801
  7. XANAX [Concomitant]
     Active Substance: ALPRAZOLAM
     Dosage: 3 MG, QD
     Route: 048
     Dates: start: 2011, end: 201408
  8. DOXEPIN [Concomitant]
     Active Substance: DOXEPIN
     Indication: SLEEP DISORDER
     Dosage: 100 MG, QHS
     Route: 048
     Dates: start: 201408
  9. XANAX [Concomitant]
     Active Substance: ALPRAZOLAM
     Indication: PANIC ATTACK
     Dosage: 1.5 MG, QD
     Route: 048
     Dates: start: 201408
  10. CYMBALTA [Concomitant]
     Active Substance: DULOXETINE HYDROCHLORIDE
     Indication: DEPRESSION
     Dosage: 30 MG, QAM
     Route: 048
     Dates: start: 201408
  11. CLONAZEPAM. [Concomitant]
     Active Substance: CLONAZEPAM
  12. MARIJUANA [Concomitant]
     Active Substance: CANNABIS SATIVA SUBSP. INDICA TOP
  13. GABAPENTIN. [Concomitant]
     Active Substance: GABAPENTIN
     Indication: FIBROMYALGIA
     Dosage: 300 MG, QID
     Route: 048
     Dates: start: 2009
  14. ASPIRIN. [Concomitant]
     Active Substance: ASPIRIN
     Dosage: 81 MG, QD
     Route: 048
  15. FENTANYL TRANSDERMAL SYSTEM [Suspect]
     Active Substance: FENTANYL
     Dosage: 50 UG/HR, Q 72 HRS
     Route: 062
     Dates: end: 20140910
  16. DOXEPIN [Concomitant]
     Active Substance: DOXEPIN
     Dosage: 100 MG, 2 QHS
     Route: 048
     Dates: start: 2008, end: 201408
  17. LISINOPRIL. [Concomitant]
     Active Substance: LISINOPRIL
     Indication: HYPERTENSION
     Dosage: 20 MG, QAM
     Route: 048
     Dates: start: 2011

REACTIONS (8)
  - Hypotension [Unknown]
  - Drug effect decreased [Not Recovered/Not Resolved]
  - Drug withdrawal syndrome [Not Recovered/Not Resolved]
  - Hypomagnesaemia [Unknown]
  - Dehydration [Unknown]
  - Hyperkalaemia [Unknown]
  - Weight decreased [Not Recovered/Not Resolved]
  - Hallucination [Unknown]

NARRATIVE: CASE EVENT DATE: 2014
